FAERS Safety Report 25276755 (Version 1)
Quarter: 2025Q2

REPORT INFORMATION
  Report Type: Spontaneous
  Country: US (occurrence: US)
  Receive Date: 20250507
  Receipt Date: 20250507
  Transmission Date: 20250716
  Serious: Yes (Hospitalization, Other)
  Sender: STRIDES
  Company Number: US-STRIDES ARCOLAB LIMITED-2025SP005598

PATIENT
  Age: 74 Year
  Sex: Female

DRUGS (1)
  1. NAPROXEN [Suspect]
     Active Substance: NAPROXEN
     Indication: Fibromyalgia
     Route: 065

REACTIONS (7)
  - Anastomotic ulcer [Unknown]
  - Gastrointestinal fistula [Unknown]
  - Cardiac disorder [Unknown]
  - Melaena [Unknown]
  - Intentional product misuse [Unknown]
  - Intentional overdose [Unknown]
  - Off label use [Unknown]
